FAERS Safety Report 12301757 (Version 1)
Quarter: 2016Q2

REPORT INFORMATION
  Report Type: Spontaneous
  Country: US (occurrence: US)
  Receive Date: 20160425
  Receipt Date: 20160425
  Transmission Date: 20160815
  Serious: Yes (Hospitalization)
  Sender: FDA-Public Use
  Company Number: US-LANTHEUS-LMI-2016-00218

PATIENT
  Age: 61 Year
  Sex: Male
  Weight: 94 kg

DRUGS (2)
  1. DEFINITY [Suspect]
     Active Substance: PERFLUTREN
     Dosage: 2 ML, SINGLE
     Route: 040
     Dates: start: 20160401, end: 20160401
  2. DEFINITY [Suspect]
     Active Substance: PERFLUTREN
     Indication: STRESS ECHOCARDIOGRAM
     Dosage: 2 ML, SINGLE
     Route: 040
     Dates: start: 20160401, end: 20160401

REACTIONS (7)
  - Lymphoproliferative disorder [Unknown]
  - Thrombocytopenia [Unknown]
  - Purpura [Unknown]
  - Neutrophilia [Unknown]
  - Lymphoedema [Unknown]
  - Oral mucosal blistering [Unknown]
  - Contusion [Unknown]

NARRATIVE: CASE EVENT DATE: 20160402
